FAERS Safety Report 10611202 (Version 1)
Quarter: 2014Q4

REPORT INFORMATION
  Report Type: Spontaneous
  Country: DE (occurrence: None)
  Receive Date: 20141124
  Receipt Date: 20141124
  Transmission Date: 20150529
  Serious: Yes (Other)
  Sender: FDA-Public Use
  Company Number: DE-017725

PATIENT
  Age: 87 Year
  Sex: Female
  Weight: 65 kg

DRUGS (2)
  1. TRANEXAMIC ACID. [Suspect]
     Active Substance: TRANEXAMIC ACID
     Indication: SMALL INTESTINAL HAEMORRHAGE
     Dosage: 2 DF BID., IV,
     Route: 042
     Dates: start: 20141023, end: 20141023
  2. MINIRIN [Suspect]
     Active Substance: DESMOPRESSIN ACETATE
     Indication: SMALL INTESTINAL HAEMORRHAGE
     Dosage: 1 DF 5X/DAY
     Route: 042
     Dates: start: 20141023, end: 20141023

REACTIONS (1)
  - Arteriospasm coronary [None]

NARRATIVE: CASE EVENT DATE: 20141023
